FAERS Safety Report 25484089 (Version 1)
Quarter: 2025Q2

REPORT INFORMATION
  Report Type: Spontaneous
  Country: CN (occurrence: CN)
  Receive Date: 20250626
  Receipt Date: 20250626
  Transmission Date: 20250717
  Serious: Yes (Other)
  Sender: BAUSCH AND LOMB
  Company Number: CN-BAUSCH-BL-2025-007907

PATIENT
  Age: 1 Year
  Sex: Male

DRUGS (1)
  1. ELIDEL [Suspect]
     Active Substance: PIMECROLIMUS
     Indication: Dermatitis atopic
     Route: 061
     Dates: start: 20250610, end: 20250612

REACTIONS (2)
  - Skin ulcer [Recovering/Resolving]
  - Rash [Recovering/Resolving]

NARRATIVE: CASE EVENT DATE: 20250612
